FAERS Safety Report 12500697 (Version 1)
Quarter: 2016Q2

REPORT INFORMATION
  Report Type: Spontaneous
  Country: FR (occurrence: FR)
  Receive Date: 20160627
  Receipt Date: 20160627
  Transmission Date: 20160815
  Serious: Yes (Hospitalization, Other)
  Sender: FDA-Public Use
  Company Number: FR-PFIZER INC-2016316215

PATIENT
  Age: 56 Year
  Sex: Female

DRUGS (4)
  1. AMLOR [Concomitant]
     Active Substance: AMLODIPINE BESYLATE
     Dosage: UNK
  2. RAMIPRIL. [Suspect]
     Active Substance: RAMIPRIL
     Dosage: UNK (2 BOXES)
     Route: 048
     Dates: start: 20160525, end: 20160525
  3. BISOPROLOL FUMARATE. [Suspect]
     Active Substance: BISOPROLOL FUMARATE
     Dosage: 6 DF, SINGLE (1 BOX)
     Route: 048
     Dates: start: 20160525, end: 20160525
  4. BRILIQUE [Suspect]
     Active Substance: TICAGRELOR
     Dosage: UNK (6 PILLS)
     Route: 048
     Dates: start: 20160525, end: 20160525

REACTIONS (3)
  - Bradycardia [Recovered/Resolved]
  - Poisoning deliberate [Recovered/Resolved]
  - Suicide attempt [Recovered/Resolved]

NARRATIVE: CASE EVENT DATE: 20160525
